FAERS Safety Report 6389615-1 (Version None)
Quarter: 2009Q4

REPORT INFORMATION
  Report Type: 
  Country: None (occurrence: None)
  Receive Date: 20091006
  Receipt Date: 20090928
  Transmission Date: 20100525
  Serious: Yes (Other)
  Sender: FDA-Public Use
  Company Number: CH-ASTRAZENECA-2009SE17049

PATIENT
  Age: 35 Year
  Sex: Female
  Weight: 80 kg

DRUGS (3)
  1. ZOLADEX [Suspect]
     Route: 058
     Dates: start: 20080601
  2. ENCEPUR N [Suspect]
     Dates: start: 20090511
  3. NOLVADEX [Concomitant]
     Route: 048
     Dates: start: 20080601

REACTIONS (6)
  - ASTHENIA [None]
  - CHEST PAIN [None]
  - DISTURBANCE IN ATTENTION [None]
  - HEADACHE [None]
  - HYPERTENSION [None]
  - PARAESTHESIA [None]
